FAERS Safety Report 19623757 (Version 1)
Quarter: 2021Q3

REPORT INFORMATION
  Report Type: Other
  Country: US (occurrence: US)
  Receive Date: 20210728
  Receipt Date: 20210728
  Transmission Date: 20211014
  Serious: Yes (Other)
  Sender: FDA-Public Use
  Company Number: US-APOTEX-2021AP025355

PATIENT
  Age: 49 Year
  Sex: Female

DRUGS (4)
  1. RANITIDINE TABLETS [Suspect]
     Active Substance: RANITIDINE HYDROCHLORIDE
     Indication: GASTROOESOPHAGEAL REFLUX DISEASE
     Dosage: OCCASIONAL
     Route: 065
     Dates: start: 199401, end: 201909
  2. RANITIDINE. [Suspect]
     Active Substance: RANITIDINE
     Indication: GASTROOESOPHAGEAL REFLUX DISEASE
     Dosage: OCCASIONAL
     Route: 065
     Dates: start: 199412, end: 199501
  3. ZANTAC [Suspect]
     Active Substance: RANITIDINE HYDROCHLORIDE
     Indication: GASTROOESOPHAGEAL REFLUX DISEASE
     Dosage: OTHER (DURING THE 1990S MORE THAN 3?4X A WEEK. WAS PRESCRIBED PREVACID AND OMEPRAZOLE DURING THE EAR
     Route: 065
     Dates: start: 199401, end: 201909
  4. RANITIDINE. [Suspect]
     Active Substance: RANITIDINE
     Indication: GASTROOESOPHAGEAL REFLUX DISEASE
     Dosage: OTHER (PERIODICALLY OVER THE COURSE OF 25 YEARS BOTH AS A PRESCRIPTION THEN IN 2000^S PRIMARILY OVER
     Route: 065
     Dates: start: 199401, end: 201909

REACTIONS (1)
  - Colorectal cancer [Not Recovered/Not Resolved]

NARRATIVE: CASE EVENT DATE: 20191101
